FAERS Safety Report 18929099 (Version 2)
Quarter: 2021Q1

REPORT INFORMATION
  Report Type: Report from Study
  Country: GB (occurrence: GB)
  Receive Date: 20210223
  Receipt Date: 20210317
  Transmission Date: 20210420
  Serious: Yes (Hospitalization, Other)
  Sender: FDA-Public Use
  Company Number: GB-SAMSUNG BIOEPIS-SB-2021-04534

PATIENT
  Age: 56 Year
  Sex: Male

DRUGS (1)
  1. IMRALDI [Suspect]
     Active Substance: ADALIMUMAB
     Indication: COLITIS
     Route: 058
     Dates: start: 20200728

REACTIONS (3)
  - Product use in unapproved indication [Unknown]
  - COVID-19 [Not Recovered/Not Resolved]
  - Hospitalisation [Unknown]
